FAERS Safety Report 4670509-4 (Version None)
Quarter: 2005Q2

REPORT INFORMATION
  Report Type: 
  Country: None (occurrence: None)
  Receive Date: 20050523
  Receipt Date: 20050211
  Transmission Date: 20051028
  Serious: Yes (Death, Hospitalization)
  Sender: FDA-Public Use
  Company Number: US-MERCK-0502USA01559

PATIENT
  Age: 64 Year
  Sex: Female
  Weight: 136 kg

DRUGS (27)
  1. VIOXX [Suspect]
     Indication: OSTEOARTHRITIS
     Route: 048
     Dates: start: 20000501, end: 20020201
  2. VIOXX [Suspect]
     Route: 048
     Dates: start: 20000501, end: 20020201
  3. VIOXX [Suspect]
     Indication: BACK PAIN
     Route: 048
     Dates: start: 20000501, end: 20020201
  4. VIOXX [Suspect]
     Route: 048
     Dates: start: 20000501, end: 20020201
  5. LEVAQUIN [Concomitant]
     Route: 065
  6. GLUCOTROL [Concomitant]
     Indication: DIABETES MELLITUS
     Route: 065
  7. ZESTRIL [Concomitant]
     Indication: HYPERTENSION
     Route: 065
     Dates: start: 19981201, end: 20020201
  8. LIPITOR [Concomitant]
     Indication: BLOOD CHOLESTEROL INCREASED
     Route: 065
     Dates: start: 19990101, end: 20020201
  9. CYCLOBENZAPRINE HYDROCHLORIDE [Concomitant]
     Route: 065
     Dates: start: 20000101
  10. METOPROLOL [Concomitant]
     Indication: HYPERTENSION
     Route: 065
     Dates: start: 19981201, end: 20020201
  11. NAPROXEN SODIUM [Concomitant]
     Route: 065
     Dates: start: 20000701
  12. NAPROXEN SODIUM [Concomitant]
     Route: 065
     Dates: start: 20000801
  13. HYDROCODONE BITARTRATE [Concomitant]
     Route: 065
     Dates: start: 20000701, end: 20000801
  14. NEURONTIN [Concomitant]
     Route: 065
     Dates: start: 20000101
  15. MAXAIR [Concomitant]
     Route: 065
  16. LOPRESSOR [Concomitant]
     Indication: HYPERTENSION
     Route: 065
     Dates: start: 19981201, end: 20020201
  17. CILOXAN [Concomitant]
     Route: 065
  18. ALLEGRA [Concomitant]
     Indication: HYPERSENSITIVITY
     Route: 065
  19. NASONEX [Concomitant]
     Indication: HYPERSENSITIVITY
     Route: 065
  20. SMZ-TMP [Concomitant]
     Route: 065
  21. IMDUR [Concomitant]
     Indication: PROPHYLAXIS
     Route: 065
  22. HUMIBID [Concomitant]
     Route: 065
  23. VICODIN [Concomitant]
     Route: 065
     Dates: start: 20000801
  24. FLEXERIL [Concomitant]
     Route: 065
     Dates: start: 20000101
  25. MOTRIN [Concomitant]
     Route: 065
     Dates: start: 19990101, end: 20000101
  26. ASPIRIN [Concomitant]
     Indication: PROPHYLAXIS
     Route: 065
     Dates: start: 19981201, end: 20020201
  27. RANITIDINE [Concomitant]
     Route: 065

REACTIONS (17)
  - ACUTE MYOCARDIAL INFARCTION [None]
  - BLOOD PRESSURE INCREASED [None]
  - CHEST PAIN [None]
  - CORONARY ARTERY DISEASE [None]
  - DEEP VEIN THROMBOSIS [None]
  - DIABETES MELLITUS [None]
  - EMOTIONAL DISTRESS [None]
  - FAECAL OCCULT BLOOD POSITIVE [None]
  - FEAR [None]
  - GASTROOESOPHAGEAL REFLUX DISEASE [None]
  - HYPERLIPIDAEMIA [None]
  - HYPERTENSION [None]
  - NECK PAIN [None]
  - OBESITY [None]
  - OSTEOARTHRITIS [None]
  - SPINAL COLUMN STENOSIS [None]
  - SPINAL DISORDER [None]
